FAERS Safety Report 21050702 (Version 5)
Quarter: 2022Q4

REPORT INFORMATION
  Report Type: Report from Study
  Country: US (occurrence: US)
  Receive Date: 20220707
  Receipt Date: 20221114
  Transmission Date: 20230112
  Serious: No
  Sender: FDA-Public Use
  Company Number: US-NOVARTISTESTPH-NVSC2022US153149

PATIENT
  Sex: Male

DRUGS (1)
  1. KESIMPTA [Suspect]
     Active Substance: OFATUMUMAB
     Indication: Multiple sclerosis
     Dosage: 20 MG, QMO
     Route: 058

REACTIONS (9)
  - SARS-CoV-2 test positive [Unknown]
  - Disease recurrence [Unknown]
  - Balance disorder [Unknown]
  - Vocal cord dysfunction [Unknown]
  - Gait disturbance [Unknown]
  - Neuralgia [Unknown]
  - Vocal cord disorder [Unknown]
  - Arthropathy [Unknown]
  - Muscle spasticity [Not Recovered/Not Resolved]
